FAERS Safety Report 25923227 (Version 1)
Quarter: 2025Q4

REPORT INFORMATION
  Report Type: Spontaneous
  Country: AU (occurrence: AU)
  Receive Date: 20251015
  Receipt Date: 20251015
  Transmission Date: 20260117
  Serious: Yes (Life-Threatening)
  Sender: GE HEALTHCARE
  Company Number: AU-GE HEALTHCARE-2025CSU013839

PATIENT
  Age: 42 Year
  Sex: Female
  Weight: 58 kg

DRUGS (1)
  1. OMNIPAQUE [Suspect]
     Active Substance: IOHEXOL
     Indication: Computerised tomogram abdomen
     Dosage: 75 ML, TOTAL
     Route: 042
     Dates: start: 20251003, end: 20251003

REACTIONS (7)
  - Eye movement disorder [Recovering/Resolving]
  - Loss of consciousness [Recovering/Resolving]
  - Respiratory arrest [Recovering/Resolving]
  - Dyspnoea [Recovering/Resolving]
  - Dizziness [Recovering/Resolving]
  - Tremor [Recovering/Resolving]
  - Nausea [Recovering/Resolving]

NARRATIVE: CASE EVENT DATE: 20251003
